FAERS Safety Report 4277758-8 (Version None)
Quarter: 2004Q1

REPORT INFORMATION
  Report Type: 
  Country: None (occurrence: None)
  Receive Date: 20040121
  Receipt Date: 20040107
  Transmission Date: 20041129
  Serious: Yes (Hospitalization)
  Sender: FDA-Public Use
  Company Number: 2004PK00040

PATIENT
  Age: 50 Year
  Sex: Female
  Weight: 54 kg

DRUGS (1)
  1. NOLVADEX [Suspect]
     Indication: BREAST CANCER
     Dosage: 20 MG DAILY PO
     Route: 048
     Dates: start: 20021104

REACTIONS (6)
  - ADENOMYOSIS [None]
  - ENDOMETRIAL HYPERPLASIA [None]
  - POST PROCEDURAL HAEMORRHAGE [None]
  - SMEAR CERVIX ABNORMAL [None]
  - UTERINE LEIOMYOMA [None]
  - UTERINE POLYP [None]
